FAERS Safety Report 13286627 (Version 1)
Quarter: 2017Q1

REPORT INFORMATION
  Report Type: Spontaneous
  Country: RS (occurrence: RS)
  Receive Date: 20170301
  Receipt Date: 20170301
  Transmission Date: 20170428
  Serious: Yes (Death, Other)
  Sender: FDA-Public Use
  Company Number: RS-BAUSCH-BL-2017-004885

PATIENT
  Age: 45 Year
  Sex: Male

DRUGS (2)
  1. HALOPERIDOL. [Suspect]
     Active Substance: HALOPERIDOL
     Indication: DELIRIUM TREMENS
     Route: 065
  2. DIAZEPAM. [Suspect]
     Active Substance: DIAZEPAM
     Indication: DELIRIUM TREMENS
     Route: 065

REACTIONS (2)
  - Venous thrombosis limb [Unknown]
  - Pulmonary embolism [Fatal]
